FAERS Safety Report 5664309-6 (Version None)
Quarter: 2008Q1

REPORT INFORMATION
  Report Type: 
  Country: None (occurrence: None)
  Receive Date: 20080314
  Receipt Date: 20080307
  Transmission Date: 20080703
  Serious: Yes (Death, Hospitalization)
  Sender: FDA-Public Use
  Company Number: PHHO2008MX03459

PATIENT
  Age: 32 Year
  Sex: Female
  Weight: 55 kg

DRUGS (3)
  1. MESALAMINE [Concomitant]
  2. STEROIDS NOS [Concomitant]
  3. GLEEVEC [Suspect]
     Indication: CERVIX CARCINOMA
     Dosage: 600 MG, QD
     Route: 048
     Dates: start: 20060418, end: 20060518

REACTIONS (3)
  - HAEMOGLOBIN DECREASED [None]
  - PLATELET COUNT DECREASED [None]
  - RECTAL HAEMORRHAGE [None]
